FAERS Safety Report 5831839-3 (Version None)
Quarter: 2008Q3

REPORT INFORMATION
  Report Type: 
  Country: None (occurrence: None)
  Receive Date: 20080729
  Receipt Date: 20080718
  Transmission Date: 20090109
  Serious: Yes (Hospitalization)
  Sender: FDA-Public Use
  Company Number: 2008SP014836

PATIENT
  Age: 70 Year
  Sex: Female

DRUGS (6)
  1. DESLORATADINE [Suspect]
     Indication: DRUG USE FOR UNKNOWN INDICATION
     Dosage: 5 MG;QD;PO
     Route: 048
  2. NASONEX [Suspect]
     Indication: DRUG USE FOR UNKNOWN INDICATION
     Dosage: 100 MG;BID;NAS
     Route: 045
  3. PROPRANOLOL [Suspect]
     Indication: OESOPHAGEAL VARICES HAEMORRHAGE
     Dosage: 160 MG; QD; PO
     Route: 048
  4. MOPRAL (OMEPRAZOLE) [Suspect]
     Indication: DRUG USE FOR UNKNOWN INDICATION
     Dosage: 20 MG; QD; PO
     Route: 048
  5. SPIRONOLACTONE [Suspect]
     Indication: DRUG USE FOR UNKNOWN INDICATION
     Dosage: 75 MG; QD; PO
     Route: 048
  6. HYPERIUM (RILMENIDINE) [Suspect]
     Indication: DRUG USE FOR UNKNOWN INDICATION
     Dosage: 1 MG; QD; PO
     Route: 048

REACTIONS (4)
  - HAEMOLYTIC ANAEMIA [None]
  - HEPATOSPLENOMEGALY [None]
  - HISTIOCYTOSIS HAEMATOPHAGIC [None]
  - PLASMACYTOSIS [None]
